FAERS Safety Report 11616409 (Version 2)
Quarter: 2015Q4

REPORT INFORMATION
  Report Type: Spontaneous
  Country: NO (occurrence: NO)
  Receive Date: 20151009
  Receipt Date: 20151022
  Transmission Date: 20160304
  Serious: Yes (Death, Life-Threatening, Hospitalization, Other)
  Sender: FDA-Public Use
  Company Number: NO-009507513-1510NOR003133

PATIENT
  Age: 82 Year
  Sex: Female

DRUGS (8)
  1. ADALAT [Concomitant]
     Active Substance: NIFEDIPINE
     Dosage: UNK
  2. METOPROLOL TARTRATE. [Concomitant]
     Active Substance: METOPROLOL TARTRATE
  3. SPIRIVA [Concomitant]
     Active Substance: TIOTROPIUM BROMIDE MONOHYDRATE
     Dosage: UNK
  4. FURIX [Concomitant]
     Active Substance: FUROSEMIDE
     Dosage: UNK
  5. CIRCADIN [Concomitant]
     Active Substance: MELATONIN
  6. MICARDIS [Concomitant]
     Active Substance: TELMISARTAN
     Dosage: UNK
  7. JANUMET [Suspect]
     Active Substance: METFORMIN HYDROCHLORIDE\SITAGLIPTIN PHOSPHATE
     Indication: TYPE 2 DIABETES MELLITUS
     Dosage: 50 MG SITAGLIPTIN/850 METFORMIN
     Route: 048
     Dates: start: 20150608, end: 20150629
  8. ONBREZ [Concomitant]
     Active Substance: INDACATEROL
     Dosage: UNK

REACTIONS (5)
  - Nausea [Recovered/Resolved]
  - Respiratory failure [Fatal]
  - Death [Fatal]
  - Hypoxia [Fatal]
  - Vomiting [Recovered/Resolved]

NARRATIVE: CASE EVENT DATE: 2015
